FAERS Safety Report 8958654 (Version 1)
Quarter: 2012Q4

REPORT INFORMATION
  Report Type: Spontaneous
  Country: US (occurrence: None)
  Receive Date: 20121206
  Receipt Date: 20121206
  Transmission Date: 20130627
  Serious: Yes (Other)
  Sender: FDA-Public Use
  Company Number: None

PATIENT
  Age: 38 Year
  Sex: Female
  Weight: 65.77 kg

DRUGS (1)
  1. TYSABRI [Suspect]
     Indication: MULTIPLE SCLEROSIS
     Dosage: every 28 days IV Drip
     Route: 041
     Dates: start: 20071119, end: 20121204

REACTIONS (2)
  - JC virus test positive [None]
  - Progressive multifocal leukoencephalopathy [None]
